FAERS Safety Report 16136632 (Version 1)
Quarter: 2019Q1

REPORT INFORMATION
  Report Type: Spontaneous
  Country: FR (occurrence: FR)
  Receive Date: 20190329
  Receipt Date: 20190329
  Transmission Date: 20190418
  Serious: Yes (Other)
  Sender: FDA-Public Use
  Company Number: IND-FR-009507513-1903FRA008199

PATIENT
  Age: 53 Year
  Sex: Female
  Weight: 65 kg

DRUGS (4)
  1. ARCOXIA [Suspect]
     Active Substance: ETORICOXIB
     Route: 048
     Dates: start: 20190128, end: 20190130
  2. LUMIRELAX (METHOCARBAMOL) [Suspect]
     Active Substance: METHOCARBAMOL
     Indication: CERVICAL RADICULOPATHY
     Route: 048
     Dates: start: 20190128, end: 20190130
  3. DAFALGAN CODEINE [Suspect]
     Active Substance: ACETAMINOPHEN\CODEINE PHOSPHATE
     Indication: CERVICAL RADICULOPATHY
     Route: 048
     Dates: start: 20190128, end: 20190130
  4. DOLIPRANE [Suspect]
     Active Substance: ACETAMINOPHEN
     Indication: CERVICAL RADICULOPATHY
     Route: 048
     Dates: start: 20190128, end: 20190130

REACTIONS (2)
  - Angioedema [Recovered/Resolved]
  - Dyspnoea [Recovered/Resolved]

NARRATIVE: CASE EVENT DATE: 20190130
